FAERS Safety Report 19779718 (Version 1)
Quarter: 2021Q3

REPORT INFORMATION
  Report Type: Spontaneous
  Country: NL (occurrence: PL)
  Receive Date: 20210902
  Receipt Date: 20210902
  Transmission Date: 20211014
  Serious: Yes (Other)
  Sender: FDA-Public Use
  Company Number: PL-FRESENIUS KABI-FK202109279

PATIENT
  Age: 57 Year
  Sex: Female

DRUGS (5)
  1. FLUOROURACIL. [Suspect]
     Active Substance: FLUOROURACIL
     Indication: PRODUCT USED FOR UNKNOWN INDICATION
     Dosage: 600 MILLIGRAM/SQ. METER (22?HOUR INFUSION ON DAY 1?2)
     Route: 042
     Dates: start: 20210407
  2. OXALIPLATIN (MANUFACTURER UNKNOWN) [Suspect]
     Active Substance: OXALIPLATIN
     Indication: COLORECTAL CANCER METASTATIC
     Dosage: 85 MILLIGRAM/SQ. METER (ON DAY 1)
     Route: 042
     Dates: start: 20210407
  3. LEVOFOLINATE SODIUM [Suspect]
     Active Substance: LEVOLEUCOVORIN DISODIUM
     Indication: COLORECTAL CANCER METASTATIC
     Dosage: 100 MILLIGRAM/SQ. METER (2?HOUR INFUSION ON DAY 1?2)
     Route: 042
     Dates: start: 20210407
  4. PANITUMUMAB [Suspect]
     Active Substance: PANITUMUMAB
     Indication: COLORECTAL CANCER METASTATIC
     Dosage: 6 MILLIGRAM/KILOGRAM (1?HOUR INFUSION ON DAY 1)
     Route: 042
     Dates: start: 20210407
  5. FLUOROURACIL. [Suspect]
     Active Substance: FLUOROURACIL
     Indication: COLORECTAL CANCER METASTATIC
     Dosage: 400 MILLIGRAM/SQ. METER (BOLUS ON DAY 1?2)
     Route: 042
     Dates: start: 20210407

REACTIONS (6)
  - Hypomagnesaemia [Unknown]
  - Dermatitis acneiform [Unknown]
  - Thrombocytopenia [Unknown]
  - Stomatitis [Unknown]
  - Asthenia [Unknown]
  - Polyneuropathy [Unknown]

NARRATIVE: CASE EVENT DATE: 2021
